FAERS Safety Report 8199116-6 (Version None)
Quarter: 2012Q1

REPORT INFORMATION
  Report Type: 
  Country: None (occurrence: None)
  Receive Date: 20120309
  Receipt Date: 20120305
  Transmission Date: 20120608
  Serious: Yes (Hospitalization)
  Sender: FDA-Public Use
  Company Number: US-ROCHE-GNE322690

PATIENT
  Sex: Male
  Weight: 4.086 kg

DRUGS (1)
  1. OMALIZUMAB [Suspect]
     Indication: ASTHMA
     Dosage: UNK
     Route: 064
     Dates: start: 20081001

REACTIONS (3)
  - DERMATITIS DIAPER [None]
  - JAUNDICE [None]
  - UNEVALUABLE EVENT [None]
